FAERS Safety Report 7224929-4 (Version None)
Quarter: 2011Q1

REPORT INFORMATION
  Report Type: 
  Country: None (occurrence: None)
  Receive Date: 20110103
  Receipt Date: 20101215
  Transmission Date: 20110831
  Serious: Yes (Other)
  Sender: FDA-Public Use
  Company Number: GB-DEXPHARM-20101516

PATIENT
  Age: 58 Year
  Sex: Female

DRUGS (5)
  1. LOPERAMIDE [Concomitant]
  2. OMEPRAZOLE [Suspect]
     Indication: GASTROOESOPHAGEAL REFLUX DISEASE
     Dosage: DOSE: 10 MG MILLIGRAM(S)
     Dates: start: 20061101, end: 20100625
  3. CITALOPRAM [Concomitant]
  4. DIGOXIN [Concomitant]
  5. IRBESARTAN [Concomitant]

REACTIONS (2)
  - DIARRHOEA [None]
  - HYPOMAGNESAEMIA [None]
